FAERS Safety Report 25937241 (Version 1)
Quarter: 2025Q4

REPORT INFORMATION
  Report Type: Spontaneous
  Country: US (occurrence: US)
  Receive Date: 20251017
  Receipt Date: 20251017
  Transmission Date: 20260117
  Serious: Yes (Other)
  Sender: SANOFI AVENTIS
  Company Number: US-SA-2025SA309065

PATIENT
  Age: 54 Year
  Sex: Female

DRUGS (36)
  1. DUPIXENT [Suspect]
     Active Substance: DUPILUMAB
     Indication: Dermatitis atopic
     Dosage: 300 MG; OTHER
     Route: 058
     Dates: start: 20200616
  2. DUPIXENT [Suspect]
     Active Substance: DUPILUMAB
     Indication: Neurodermatitis
  3. DUPIXENT [Suspect]
     Active Substance: DUPILUMAB
     Indication: Asthma
  4. DUPIXENT [Suspect]
     Active Substance: DUPILUMAB
     Indication: Rhinitis allergic
  5. DUPIXENT [Suspect]
     Active Substance: DUPILUMAB
     Indication: Seasonal allergy
  6. VALACYCLOVIR HYDROCHLORIDE [Concomitant]
     Active Substance: VALACYCLOVIR HYDROCHLORIDE
  7. TRIAMCINOLONE [Concomitant]
     Active Substance: TRIAMCINOLONE
  8. TUKYSA [Concomitant]
     Active Substance: TUCATINIB
  9. PERJETA [Concomitant]
     Active Substance: PERTUZUMAB
     Route: 042
  10. CLOBETASOL [Concomitant]
     Active Substance: CLOBETASOL
  11. DOXYCYCLINE [Concomitant]
     Active Substance: DOXYCYCLINE
  12. ZOLEDRONIC ACID [Concomitant]
     Active Substance: ZOLEDRONIC ACID
  13. VITAMIN D3 [Concomitant]
     Active Substance: CHOLECALCIFEROL
  14. HERCEPTIN [Concomitant]
     Active Substance: TRASTUZUMAB
  15. Coq [Concomitant]
  16. DILAUDID [Concomitant]
     Active Substance: HYDROMORPHONE HYDROCHLORIDE
  17. VALTREX [Concomitant]
     Active Substance: VALACYCLOVIR HYDROCHLORIDE
     Route: 048
  18. VITAMIN B [Concomitant]
     Active Substance: VITAMIN B
  19. MONTELUKAST SODIUM [Concomitant]
     Active Substance: MONTELUKAST SODIUM
  20. TACROLIMUS [Concomitant]
     Active Substance: TACROLIMUS
  21. JOINT HEALTH [Concomitant]
     Active Substance: AMINO ACIDS\BARLEY MALT
  22. TAMOXIFEN [Concomitant]
     Active Substance: TAMOXIFEN
  23. NYSTATIN [Concomitant]
     Active Substance: NYSTATIN
  24. FAMOTIDINE [Concomitant]
     Active Substance: FAMOTIDINE
  25. CETIRIZINE HCL [Concomitant]
     Active Substance: CETIRIZINE HYDROCHLORIDE
  26. ALREX [Concomitant]
     Active Substance: LOTEPREDNOL ETABONATE
     Route: 047
  27. FLUTICASONE PROPIONATE [Concomitant]
     Active Substance: FLUTICASONE PROPIONATE
  28. LORATADINE [Concomitant]
     Active Substance: LORATADINE
  29. ZANTAC [Concomitant]
     Active Substance: RANITIDINE HYDROCHLORIDE
  30. ALLEGRA [Concomitant]
     Active Substance: FEXOFENADINE HYDROCHLORIDE
  31. GABAPENTIN [Concomitant]
     Active Substance: GABAPENTIN
  32. CALCIUM [Concomitant]
     Active Substance: CALCIUM
  33. ALBUTEROL [Concomitant]
     Active Substance: ALBUTEROL
  34. PROTOPIC [Concomitant]
     Active Substance: TACROLIMUS
  35. CYCLOBENZAPRINE [Concomitant]
     Active Substance: CYCLOBENZAPRINE
  36. ESTRING [Concomitant]
     Active Substance: ESTRADIOL

REACTIONS (2)
  - Keratitis viral [Unknown]
  - Product use in unapproved indication [Unknown]

NARRATIVE: CASE EVENT DATE: 20200616
